FAERS Safety Report 10248536 (Version 1)
Quarter: 2014Q2

REPORT INFORMATION
  Report Type: Spontaneous
  Country: US (occurrence: None)
  Receive Date: 20140617
  Receipt Date: 20140617
  Transmission Date: 20141212
  Serious: No
  Sender: FDA-Public Use
  Company Number: None

PATIENT
  Age: 57 Year
  Sex: Male

DRUGS (2)
  1. SOVALDI 400MG GILEAD SCIENCES [Suspect]
     Indication: HEPATITIS C
     Route: 048
     Dates: start: 20140522, end: 20140616
  2. RIBAVIRIN [Suspect]
     Indication: HEPATITIS C
     Dosage: 600MG/400MG   600MG AM/ 400MG PM  ORAL
     Route: 048
     Dates: start: 20140522, end: 20140616

REACTIONS (2)
  - Cough [None]
  - Fatigue [None]
